FAERS Safety Report 6542120-1 (Version None)
Quarter: 2010Q1

REPORT INFORMATION
  Report Type: 
  Country: None (occurrence: None)
  Receive Date: 20100114
  Receipt Date: 20100114
  Transmission Date: 20100710
  Serious: Yes (Hospitalization)
  Sender: FDA-Public Use
  Company Number: None

PATIENT
  Sex: Male
  Weight: 11 kg

DRUGS (5)
  1. PEG-L-ASPARAGINASE (PEGASPARGASE, ONCOSPAR) [Suspect]
     Dosage: 1250 IU
  2. VINCRISTINE SULFATE [Suspect]
     Dosage: 3 MG
  3. CYTARABINE [Suspect]
     Dosage: 50 MG
  4. DEXAMETHASONE [Suspect]
     Dosage: 81 MG
  5. METHOTREXATE [Suspect]
     Dosage: 10 MG

REACTIONS (3)
  - BRAIN HERNIATION [None]
  - CEREBRAL ASPERGILLOSIS [None]
  - CEREBRAL INFARCTION [None]
